FAERS Safety Report 12792446 (Version 1)
Quarter: 2016Q3

REPORT INFORMATION
  Report Type: Spontaneous
  Country: US (occurrence: US)
  Receive Date: 20160927
  Receipt Date: 20160927
  Transmission Date: 20161109
  Serious: Yes (Other)
  Sender: FDA-Public Use
  Company Number: None

PATIENT
  Age: 80 Year
  Sex: Male
  Weight: 117.03 kg

DRUGS (8)
  1. CALCIUM CITRATE [Concomitant]
     Active Substance: CALCIUM CITRATE
  2. METOPROLOL. [Concomitant]
     Active Substance: METOPROLOL
  3. ATORVASTATIN CALCIUM. [Concomitant]
     Active Substance: ATORVASTATIN CALCIUM
  4. LEVOTHYROXIN [Concomitant]
     Active Substance: LEVOTHYROXINE
  5. TECENTRIQ [Suspect]
     Active Substance: ATEZOLIZUMAB
     Indication: BLADDER CANCER
     Dates: start: 20160607, end: 20160831
  6. TECENTRIQ [Suspect]
     Active Substance: ATEZOLIZUMAB
     Indication: LUNG NEOPLASM MALIGNANT
     Dates: start: 20160607, end: 20160831
  7. DIALYVITE [Concomitant]
     Active Substance: ASCORBIC ACID\BIOTIN\CALCIUM PANTOTHENATE\COBALAMIN\FOLIC ACID\NIACINAMIDE\PYRIDOXINE HYDROCHLORIDE\RIBOFLAVIN\THIAMINE MONONITRATE
  8. OMEPRAZOLE. [Concomitant]
     Active Substance: OMEPRAZOLE

REACTIONS (12)
  - Musculoskeletal stiffness [None]
  - Muscular weakness [None]
  - Dyspnoea [None]
  - Decreased appetite [None]
  - Loss of control of legs [None]
  - Rash [None]
  - Pain [None]
  - Fatigue [None]
  - Constipation [None]
  - Gait disturbance [None]
  - Renal disorder [None]
  - Pollakiuria [None]

NARRATIVE: CASE EVENT DATE: 20160831
